FAERS Safety Report 19211263 (Version 1)
Quarter: 2021Q2

REPORT INFORMATION
  Report Type: Spontaneous
  Country: US (occurrence: US)
  Receive Date: 20210504
  Receipt Date: 20210504
  Transmission Date: 20210717
  Serious: Yes (Other)
  Sender: FDA-Public Use
  Company Number: None

PATIENT
  Age: 46 Year
  Sex: Female
  Weight: 74.25 kg

DRUGS (1)
  1. LEVOFLOXACIN. [Suspect]
     Active Substance: LEVOFLOXACIN
     Indication: PNEUMONIA
     Dates: start: 20191126, end: 20191128

REACTIONS (6)
  - Muscle tightness [None]
  - Muscle twitching [None]
  - Arthralgia [None]
  - Tendon disorder [None]
  - Muscular weakness [None]
  - Joint noise [None]

NARRATIVE: CASE EVENT DATE: 20191126
